FAERS Safety Report 12285785 (Version 1)
Quarter: 2016Q2

REPORT INFORMATION
  Report Type: Report from Study
  Country: GB (occurrence: GB)
  Receive Date: 20160420
  Receipt Date: 20160420
  Transmission Date: 20160815
  Serious: Yes (Other)
  Sender: FDA-Public Use
  Company Number: GB-ROCHE-1745070

PATIENT
  Age: 57 Year
  Sex: Male

DRUGS (3)
  1. RITUXIMAB [Suspect]
     Active Substance: RITUXIMAB
     Indication: B-CELL PROLYMPHOCYTIC LEUKAEMIA
     Dosage: GIVEN 2-WEEKLY (CYCLE 1-2) AND THEN 4-WEEKLY (CYCLES 3- 6), FOR 28 DAYS
     Route: 042
  2. IDELALISIB [Suspect]
     Active Substance: IDELALISIB
     Indication: B-CELL PROLYMPHOCYTIC LEUKAEMIA
     Dosage: 6 CYCLE FOR 28 DAYS
     Route: 065
  3. IDELALISIB [Suspect]
     Active Substance: IDELALISIB
     Dosage: 6 CYCLE FOR 28 DAYS
     Route: 065

REACTIONS (1)
  - Alanine aminotransferase increased [Recovered/Resolved]
